FAERS Safety Report 6675737-4 (Version None)
Quarter: 2010Q2

REPORT INFORMATION
  Report Type: 
  Country: None (occurrence: None)
  Receive Date: 20100409
  Receipt Date: 20100401
  Transmission Date: 20101027
  Serious: Yes (Other)
  Sender: FDA-Public Use
  Company Number: US-AMGEN-QUU403258

PATIENT
  Sex: Female

DRUGS (10)
  1. NPLATE [Suspect]
     Indication: IDIOPATHIC THROMBOCYTOPENIC PURPURA
     Dates: start: 20090626
  2. LENALIDOMIDE [Concomitant]
     Dates: start: 20100101
  3. OMEPRAZOLE [Concomitant]
  4. UNSPECIFIED MEDICATION [Concomitant]
  5. K-DUR [Concomitant]
  6. FIORICET [Concomitant]
  7. CALCIUM [Concomitant]
  8. ALPRAZOLAM [Concomitant]
  9. PROPRANOLOL [Concomitant]
  10. SIMVASTATIN [Concomitant]

REACTIONS (1)
  - THERAPEUTIC RESPONSE DECREASED [None]
